FAERS Safety Report 5877869-7 (Version None)
Quarter: 2008Q3

REPORT INFORMATION
  Report Type: 
  Country: None (occurrence: None)
  Receive Date: 20080911
  Receipt Date: 20080903
  Transmission Date: 20090109
  Serious: Yes (Death, Hospitalization, Other)
  Sender: FDA-Public Use
  Company Number: US-BAYER-200811300NA

PATIENT
  Age: 66 Year
  Sex: Male

DRUGS (5)
  1. NEXAVAR [Suspect]
     Indication: RENAL CELL CARCINOMA
     Dosage: TOTAL DAILY DOSE: 800 MG  UNIT DOSE: 200 MG
     Route: 048
     Dates: start: 20071209, end: 20071201
  2. NEXAVAR [Suspect]
     Dosage: TOTAL DAILY DOSE: 400 MG  UNIT DOSE: 200 MG
     Route: 048
     Dates: start: 20071201
  3. LISINOPRIL [Concomitant]
  4. TYLENOL W/ CODEINE [Concomitant]
     Indication: MUSCULOSKELETAL PAIN
  5. PREDNISONE TAB [Concomitant]

REACTIONS (5)
  - CHEST PAIN [None]
  - DEATH [None]
  - JOINT SWELLING [None]
  - MUSCLE SPASMS [None]
  - MYOCARDIAL INFARCTION [None]
